FAERS Safety Report 11565641 (Version 1)
Quarter: 2015Q3

REPORT INFORMATION
  Report Type: Spontaneous
  Country: US (occurrence: US)
  Receive Date: 20150916
  Receipt Date: 20150916
  Transmission Date: 20151125
  Serious: No
  Sender: FDA-Public Use
  Company Number: US-ELI_LILLY_AND_COMPANY-US200905001097

PATIENT
  Age: 80 Year
  Sex: Female

DRUGS (5)
  1. ADVIL [Concomitant]
     Active Substance: IBUPROFEN
     Dosage: 2 D/F, UNK
  2. CITRACAL [Concomitant]
     Active Substance: CALCIUM CITRATE
     Dosage: UNK, DAILY (1/D)
  3. PRAVASTATIN [Concomitant]
     Active Substance: PRAVASTATIN\PRAVASTATIN SODIUM
     Dosage: 20 MG, DAILY (1/D)
  4. FORTEO [Suspect]
     Active Substance: TERIPARATIDE
     Dosage: UNK, UNK
     Dates: start: 2009, end: 2009
  5. FORTEO [Suspect]
     Active Substance: TERIPARATIDE
     Dosage: UNK, UNK
     Dates: start: 2009, end: 2009

REACTIONS (2)
  - Vitamin D decreased [Unknown]
  - Nausea [Not Recovered/Not Resolved]

NARRATIVE: CASE EVENT DATE: 200904
